FAERS Safety Report 5338463-X (Version None)
Quarter: 2007Q2

REPORT INFORMATION
  Report Type: 
  Country: None (occurrence: None)
  Receive Date: 20070405
  Receipt Date: 20061108
  Transmission Date: 20071010
  Serious: No
  Sender: FDA-Public Use
  Company Number: US200611001883

PATIENT
  Age: 70 Year
  Sex: Female

DRUGS (4)
  1. CYMBALTA [Suspect]
     Indication: DEPRESSION
     Dosage: 30 MG, DAILY (1/D), 60 MG, DAILY (1/D)
     Dates: start: 20060911, end: 20060917
  2. CYMBALTA [Suspect]
     Indication: DEPRESSION
     Dosage: 30 MG, DAILY (1/D), 60 MG, DAILY (1/D)
     Dates: start: 20060918
  3. LEXAPRO /USA/ (ESCITALOPRAM) [Concomitant]
  4. KLONOPIN [Concomitant]

REACTIONS (5)
  - CRYING [None]
  - DEPRESSION [None]
  - FEELING ABNORMAL [None]
  - NAUSEA [None]
  - SOMNOLENCE [None]
